FAERS Safety Report 15354142 (Version 5)
Quarter: 2021Q1

REPORT INFORMATION
  Report Type: Spontaneous
  Country: IT (occurrence: IT)
  Receive Date: 20180906
  Receipt Date: 20210106
  Transmission Date: 20210419
  Serious: Yes (Hospitalization, Other)
  Sender: FDA-Public Use
  Company Number: PHHY2018IT088756

PATIENT
  Age: 81 Year
  Sex: Male

DRUGS (19)
  1. ORPHENADRINE [Suspect]
     Active Substance: ORPHENADRINE
     Indication: MAJOR DEPRESSION
     Dosage: 100 MG, QD
     Route: 065
  2. CARDICOR [Interacting]
     Active Substance: BISOPROLOL
     Indication: ATRIAL FIBRILLATION
     Dosage: 1.25 MG, BID(ALTERNATE DAY)
     Route: 065
  3. SPIRIVA [Interacting]
     Active Substance: TIOTROPIUM BROMIDE MONOHYDRATE
     Dosage: 1 PUFF ONCE A DAY
     Route: 065
  4. TRIATEC HCT [Interacting]
     Active Substance: HYDROCHLOROTHIAZIDE\RAMIPRIL
     Dosage: 5/25 MG ONCE A DAY
     Route: 065
  5. AMITRIPTYLINE [Suspect]
     Active Substance: AMITRIPTYLINE
     Indication: MAJOR DEPRESSION
     Dosage: 40 MG, QD
     Route: 065
  6. TORVAST [Interacting]
     Active Substance: ATORVASTATIN
     Indication: HYPERCHOLESTEROLAEMIA
     Dosage: 20 MILLIGRAM, ONCE A DAY (QD)
     Route: 065
  7. TRIATEC HCT [Interacting]
     Active Substance: HYDROCHLOROTHIAZIDE\RAMIPRIL
     Indication: HYPERTENSION
     Dosage: 25 MG, QD
     Route: 065
  8. RISPERIDONE. [Interacting]
     Active Substance: RISPERIDONE
     Indication: PSYCHOTIC DISORDER
     Dosage: 1 MILLIGRAM, BEDTIME (HS)
     Route: 065
  9. LORAZEPAM. [Suspect]
     Active Substance: LORAZEPAM
     Indication: MAJOR DEPRESSION
     Dosage: 2 MG, QD
     Route: 065
  10. HALOPERIDOL. [Suspect]
     Active Substance: HALOPERIDOL
     Indication: MAJOR DEPRESSION
     Dosage: 2 MG, QD
     Route: 065
  11. SINEMET [Interacting]
     Active Substance: CARBIDOPA\LEVODOPA
     Indication: PARKINSONISM
     Dosage: 25 MG, QD
     Route: 065
  12. SINEMET [Interacting]
     Active Substance: CARBIDOPA\LEVODOPA
     Dosage: 1 DOSAGE FORM, QD (REPORTED AS 100/25 ONCE A DAY)
     Route: 048
  13. ELIQUIS [Interacting]
     Active Substance: APIXABAN
     Indication: ATRIAL FIBRILLATION
     Dosage: 5 MG, BID
     Route: 065
  14. EN [Interacting]
     Active Substance: DELORAZEPAM
     Indication: ANXIETY
     Dosage: 10 GTT DROPS, (REPORTED AS ^10 DROPS AT BEDTIME (HS))(DROP (1/12 MILLILITRE))
     Route: 065
  15. PANTOPAN [Suspect]
     Active Substance: PANTOPRAZOLE SODIUM
     Indication: PROPHYLAXIS
     Dosage: 20 MG
     Route: 065
  16. ELIQUIS [Interacting]
     Active Substance: APIXABAN
     Indication: CEREBROVASCULAR ACCIDENT PROPHYLAXIS
  17. SPIRIVA [Interacting]
     Active Substance: TIOTROPIUM BROMIDE MONOHYDRATE
     Indication: CHRONIC OBSTRUCTIVE PULMONARY DISEASE
     Dosage: 18 UG, QD
     Route: 065
  18. LARGACTIL [Interacting]
     Active Substance: CHLORPROMAZINE
     Indication: PSYCHOTIC DISORDER
     Dosage: 25 MILLIGRAM, HS
     Route: 065
  19. NOVONORM [Interacting]
     Active Substance: REPAGLINIDE
     Indication: DIABETES MELLITUS
     Dosage: 0.5 MILLIGRAM, BID
     Route: 065

REACTIONS (18)
  - Cerebral atrophy [Unknown]
  - Agitation [Recovered/Resolved]
  - Cardiac murmur [Unknown]
  - Persecutory delusion [Recovered/Resolved]
  - Hypertonia [Recovering/Resolving]
  - Drug interaction [Unknown]
  - Dementia [Recovering/Resolving]
  - Labelled drug-drug interaction medication error [Unknown]
  - Sedation [Recovered/Resolved]
  - Delirium [Recovered/Resolved]
  - Confusional state [Recovered/Resolved]
  - Off label use [Unknown]
  - Product prescribing issue [Unknown]
  - Insomnia [Recovered/Resolved]
  - Depressed mood [Recovering/Resolving]
  - Cognitive disorder [Recovering/Resolving]
  - Condition aggravated [Recovered/Resolved]
  - Hallucination [Recovered/Resolved]
